FAERS Safety Report 13131701 (Version 1)
Quarter: 2017Q1

REPORT INFORMATION
  Report Type: Spontaneous
  Country: US (occurrence: US)
  Receive Date: 20170119
  Receipt Date: 20170119
  Transmission Date: 20170428
  Serious: No
  Sender: FDA-Public Use
  Company Number: US-009507513-1701USA008680

PATIENT
  Age: 23 Year
  Sex: Female
  Weight: 61.22 kg

DRUGS (2)
  1. NEXPLANON [Suspect]
     Active Substance: ETONOGESTREL
     Indication: MENSTRUATION IRREGULAR
     Dosage: 1 ROD UP TO 3 YEARS
     Route: 059
     Dates: start: 20150930
  2. NEXPLANON [Suspect]
     Active Substance: ETONOGESTREL
     Indication: MIGRAINE

REACTIONS (4)
  - Metrorrhagia [Unknown]
  - Product use issue [Unknown]
  - Migraine [Unknown]
  - Menstruation delayed [Unknown]

NARRATIVE: CASE EVENT DATE: 201610
